FAERS Safety Report 13253053 (Version 1)
Quarter: 2017Q1

REPORT INFORMATION
  Report Type: Report from Study
  Country: US (occurrence: US)
  Receive Date: 20170220
  Receipt Date: 20170220
  Transmission Date: 20170428
  Serious: Yes (Hospitalization)
  Sender: FDA-Public Use
  Company Number: US-BRISTOL-MYERS SQUIBB COMPANY-BMS-2017-011950

PATIENT
  Age: 56 Year
  Sex: Female
  Weight: 64 kg

DRUGS (9)
  1. NIVOLUMAB [Suspect]
     Active Substance: NIVOLUMAB
     Indication: LUNG ADENOCARCINOMA
     Dosage: 181.5 MG, UNK
     Route: 065
     Dates: start: 20170125
  2. ONDANSETRON [Concomitant]
     Active Substance: ONDANSETRON
     Indication: PROPHYLAXIS
     Route: 065
  3. VITAMIN B12 [Concomitant]
     Active Substance: CYANOCOBALAMIN
     Indication: ADVERSE EVENT
     Dosage: UNK, QD
     Route: 048
     Dates: start: 201412
  4. FPA008 [Suspect]
     Active Substance: CABIRALIZUMAB
     Indication: LUNG ADENOCARCINOMA
     Dosage: 242 MG, Q2WK
     Route: 065
     Dates: start: 20170125
  5. LORAZEPAM. [Concomitant]
     Active Substance: LORAZEPAM
     Indication: NAUSEA
     Dosage: 0.5 MG, UNK
     Route: 060
     Dates: start: 20161203
  6. LORAZEPAM. [Concomitant]
     Active Substance: LORAZEPAM
     Indication: PROPHYLAXIS
     Route: 065
  7. ONDANSETRON [Concomitant]
     Active Substance: ONDANSETRON
     Indication: NAUSEA
     Dosage: 4 MG, PRN
     Route: 048
     Dates: start: 2014
  8. TETRAHYDROCANNABINOL [Concomitant]
     Active Substance: DRONABINOL
     Indication: INSOMNIA
     Dosage: 12.5 MG, PRN
     Route: 048
  9. FOLIC ACID. [Concomitant]
     Active Substance: FOLIC ACID
     Indication: ADVERSE EVENT
     Dosage: UNK, QD
     Route: 048
     Dates: start: 201412

REACTIONS (2)
  - Fatigue [Not Recovered/Not Resolved]
  - Dehydration [Not Recovered/Not Resolved]

NARRATIVE: CASE EVENT DATE: 20170208
